FAERS Safety Report 24223559 (Version 1)
Quarter: 2024Q3

REPORT INFORMATION
  Report Type: Spontaneous
  Country: US (occurrence: None)
  Receive Date: 20240816
  Receipt Date: 20240816
  Transmission Date: 20241016
  Serious: No
  Sender: Public
  Company Number: None

PATIENT
  Age: 70 Year
  Sex: Female
  Weight: 56.7 kg

DRUGS (12)
  1. ROPINIROLE HYDROCHLORIDE [Suspect]
     Active Substance: ROPINIROLE HYDROCHLORIDE
     Indication: Myoclonic epilepsy
     Dosage: OTHER QUANTITY : 1 TABLET(S);?FREQUENCY : AT BEDTIME;?
     Route: 048
  2. CIMETIDINE [Concomitant]
     Active Substance: CIMETIDINE
  3. Ropinerol [Concomitant]
  4. HYDROXYZINE HYDROCHLORIDE [Concomitant]
     Active Substance: HYDROXYZINE HYDROCHLORIDE
  5. QUININE SULFATE [Concomitant]
     Active Substance: QUININE SULFATE
  6. METFORMIN [Concomitant]
     Active Substance: METFORMIN HYDROCHLORIDE
  7. PROPRANOLOL HYDROCHLORIDE [Concomitant]
     Active Substance: PROPRANOLOL HYDROCHLORIDE
  8. DOXYCYCLINE [Concomitant]
     Active Substance: DOXYCYCLINE\DOXYCYCLINE HYCLATE
  9. Diprydamole [Concomitant]
  10. LD-Naltrexone [Concomitant]
  11. ATORVASTATIN [Concomitant]
     Active Substance: ATORVASTATIN
  12. ANASTROZOLE [Concomitant]
     Active Substance: ANASTROZOLE

REACTIONS (6)
  - Nightmare [None]
  - Night sweats [None]
  - Insomnia [None]
  - Sleep disorder [None]
  - Somnolence [None]
  - Depressed level of consciousness [None]

NARRATIVE: CASE EVENT DATE: 20240219
